FAERS Safety Report 6721971-4 (Version None)
Quarter: 2010Q2

REPORT INFORMATION
  Report Type: 
  Country: None (occurrence: None)
  Receive Date: 20100512
  Receipt Date: 20100505
  Transmission Date: 20101027
  Serious: Yes (Death, Hospitalization, Other)
  Sender: FDA-Public Use
  Company Number: A0859193A

PATIENT
  Sex: Female
  Weight: 38 kg

DRUGS (3)
  1. SERETIDE [Suspect]
     Route: 065
     Dates: start: 20030101, end: 20100401
  2. SPIRIVA [Concomitant]
     Dosage: 1PUFF PER DAY
     Dates: start: 20030101, end: 20100401
  3. DUOVENT [Concomitant]
     Dosage: 2PUFF SIX TIMES PER DAY
     Dates: start: 20030101, end: 20100401

REACTIONS (4)
  - CHRONIC OBSTRUCTIVE PULMONARY DISEASE [None]
  - PNEUMONIA [None]
  - RESPIRATORY FAILURE [None]
  - TRACHEOSTOMY [None]
